FAERS Safety Report 10194864 (Version 1)
Quarter: 2014Q2

REPORT INFORMATION
  Report Type: Spontaneous
  Country: US (occurrence: US)
  Receive Date: 20140526
  Receipt Date: 20140526
  Transmission Date: 20141212
  Serious: No
  Sender: FDA-Public Use
  Company Number: US-PFIZER INC-2014139296

PATIENT
  Age: 62 Year
  Sex: Female
  Weight: 70.3 kg

DRUGS (6)
  1. LYRICA [Suspect]
     Indication: FIBROMYALGIA
     Dosage: 50 MG, 2X/DAY
     Dates: start: 2007
  2. LYRICA [Suspect]
     Indication: BACK INJURY
     Dosage: 50 MG, DAILY
  3. LYRICA [Suspect]
     Indication: NERVE COMPRESSION
     Dosage: 50 MG, AS NEEDED
  4. LYRICA [Suspect]
     Indication: MYALGIA
     Dosage: 50 MG, UNK
  5. ATENOLOL/CHLORTHALIDONE [Concomitant]
     Indication: HYPERTENSION
     Dosage: (ATENOLOL 50/ CHLORTHALIDONE 25) MG, DAILY
  6. ATORVASTATIN [Concomitant]
     Indication: BLOOD CHOLESTEROL INCREASED
     Dosage: 40 MG, DAILY

REACTIONS (1)
  - Dizziness [Unknown]
